FAERS Safety Report 22864251 (Version 2)
Quarter: 2023Q4

REPORT INFORMATION
  Report Type: Spontaneous
  Country: CA (occurrence: CA)
  Receive Date: 20230825
  Receipt Date: 20231120
  Transmission Date: 20240110
  Serious: Yes (Other)
  Sender: FDA-Public Use
  Company Number: CA-CELLTRION INC.-2022CA021414

PATIENT

DRUGS (12)
  1. INFLECTRA [Suspect]
     Active Substance: INFLIXIMAB-DYYB
     Indication: Crohn^s disease
     Dosage: 280 MG OR 5MG/KG AT WEEK 0,2 6 THEN EVERY 8 WEEKS
     Route: 042
     Dates: start: 20221122
  2. INFLECTRA [Suspect]
     Active Substance: INFLIXIMAB-DYYB
     Dosage: 280 MG OR 5MG/KG AT WEEK 0,2 6 THEN EVERY 8 WEEKS
     Route: 042
     Dates: start: 20221207
  3. INFLECTRA [Suspect]
     Active Substance: INFLIXIMAB-DYYB
     Dosage: 280 MG OR 5MG/KG AT WEEK 0,2 6 THEN EVERY 8 WEEKS
     Route: 042
     Dates: start: 20230112
  4. INFLECTRA [Suspect]
     Active Substance: INFLIXIMAB-DYYB
     Dosage: 305 MG (5MG/KG AT WEEK 0,2 6 THEN EVERY 8 WEEKS) AFTER 12 WEEKS
     Route: 042
     Dates: start: 20230406
  5. INFLECTRA [Suspect]
     Active Substance: INFLIXIMAB-DYYB
     Dosage: 280 MG OR 5MG/KG, EVERY 8 WEEKS
     Route: 042
     Dates: start: 20230601
  6. INFLECTRA [Suspect]
     Active Substance: INFLIXIMAB-DYYB
     Dosage: 320 MG (5 MG/KG), 11 WEEKS AFTER LAST TREATMENT (PRESCRIBED INFUSIONS ARE EVERY 8 WEEKS)
     Route: 042
     Dates: start: 20230817
  7. INFLECTRA [Suspect]
     Active Substance: INFLIXIMAB-DYYB
     Dosage: 280 MG OR 5MG/KG AT WEEK 0,2 6 THEN EVERY 8 WEEKS (325 MG, AFTER 12 WEEKS)
     Route: 042
     Dates: start: 20231109
  8. GRAVOL [Concomitant]
     Active Substance: DIMENHYDRINATE
     Dosage: 1 DF
     Dates: start: 20221118
  9. IRON [Concomitant]
     Active Substance: IRON
     Dosage: 1 DF (PILLS)
  10. PANTOPRAZOLE SODIUM [Concomitant]
     Active Substance: PANTOPRAZOLE SODIUM
     Dosage: 1 DF
     Dates: start: 20221118
  11. PREDNISONE [Concomitant]
     Active Substance: PREDNISONE
     Dosage: 40MG (TAPERING DOWN 5MG Q 5 DAYS)
     Dates: start: 20221108
  12. CHOLECALCIFEROL [Concomitant]
     Active Substance: CHOLECALCIFEROL
     Dosage: 1 DF

REACTIONS (8)
  - Condition aggravated [Recovering/Resolving]
  - Maternal exposure timing unspecified [Unknown]
  - Weight increased [Not Recovered/Not Resolved]
  - COVID-19 [Recovered/Resolved]
  - Off label use [Unknown]
  - Inappropriate schedule of product administration [Unknown]
  - Product dose omission in error [Unknown]
  - Endodontic procedure [Unknown]

NARRATIVE: CASE EVENT DATE: 20221201
